FAERS Safety Report 22015541 (Version 2)
Quarter: 2023Q1

REPORT INFORMATION
  Report Type: Report from Study
  Country: CA (occurrence: CA)
  Receive Date: 20230221
  Receipt Date: 20230304
  Transmission Date: 20230417
  Serious: Yes (Other)
  Sender: FDA-Public Use
  Company Number: CA-002147023-NVSC2023CA035550

PATIENT
  Age: 75 Year
  Sex: Male

DRUGS (2)
  1. TAFINLAR [Suspect]
     Active Substance: DABRAFENIB MESYLATE
     Indication: Malignant melanoma
     Dosage: 150 MG, BID
     Route: 048
     Dates: start: 20230205
  2. MEKINIST [Suspect]
     Active Substance: TRAMETINIB DIMETHYL SULFOXIDE
     Indication: Malignant melanoma
     Dosage: 2 MG, QD
     Route: 048
     Dates: start: 20230205

REACTIONS (12)
  - Loss of consciousness [Unknown]
  - Fall [Unknown]
  - Influenza [Unknown]
  - Tremor [Unknown]
  - Throat irritation [Unknown]
  - Vertigo [Unknown]
  - Asthenia [Unknown]
  - Chills [Unknown]
  - Nasopharyngitis [Unknown]
  - Dyspnoea [Unknown]
  - Epistaxis [Unknown]
  - Treatment failure [Unknown]
